FAERS Safety Report 22055509 (Version 2)
Quarter: 2023Q1

REPORT INFORMATION
  Report Type: Spontaneous
  Country: US (occurrence: US)
  Receive Date: 20230302
  Receipt Date: 20230317
  Transmission Date: 20230418
  Serious: Yes (Life-Threatening, Hospitalization)
  Sender: FDA-Public Use
  Company Number: US-TEVA-2023-US-2859632

PATIENT
  Age: 24 Year
  Sex: Male

DRUGS (2)
  1. LOPERAMIDE HYDROCHLORIDE [Suspect]
     Active Substance: LOPERAMIDE HYDROCHLORIDE
     Indication: Drug abuse
     Dosage: 300 MILLIGRAM DAILY; ONCE A DAY
     Route: 048
  2. LOPERAMIDE HYDROCHLORIDE [Suspect]
     Active Substance: LOPERAMIDE HYDROCHLORIDE
     Indication: Overdose

REACTIONS (12)
  - Cardiotoxicity [Unknown]
  - Syncope [Unknown]
  - Anxiety [Unknown]
  - Chills [Unknown]
  - Diarrhoea [Unknown]
  - Piloerection [Unknown]
  - Ventricular tachycardia [Unknown]
  - Sinus bradycardia [Unknown]
  - Electrocardiogram QT prolonged [Unknown]
  - Electrocardiogram QRS complex prolonged [Unknown]
  - Overdose [Unknown]
  - Drug abuse [Unknown]
